FAERS Safety Report 25216936 (Version 1)
Quarter: 2025Q2

REPORT INFORMATION
  Report Type: Spontaneous
  Country: US (occurrence: US)
  Receive Date: 20250419
  Receipt Date: 20250419
  Transmission Date: 20250716
  Serious: Yes (Life-Threatening)
  Sender: ASPIRO PHARMA
  Company Number: US-ASPIRO-ASP2025US01863

PATIENT
  Age: 61 Year
  Sex: Female

DRUGS (2)
  1. NOREPINEPHRINE [Suspect]
     Active Substance: NOREPINEPHRINE
     Indication: Product used for unknown indication
     Route: 065
  2. DOBUTAMINE [Concomitant]
     Active Substance: DOBUTAMINE HYDROCHLORIDE
     Indication: Product used for unknown indication
     Route: 065

REACTIONS (1)
  - Therapy non-responder [Unknown]
